FAERS Safety Report 8026170-4 (Version None)
Quarter: 2012Q1

REPORT INFORMATION
  Report Type: 
  Country: None (occurrence: None)
  Receive Date: 20120105
  Receipt Date: 20110203
  Transmission Date: 20120608
  Serious: No
  Sender: FDA-Public Use
  Company Number: US-ABBOTT-11P-163-0703512-00

PATIENT
  Sex: Female
  Weight: 68.1 kg

DRUGS (5)
  1. PEPCID [Concomitant]
     Indication: ULCER
  2. PRADAXA [Concomitant]
     Indication: PRODUCT USED FOR UNKNOWN INDICATION
  3. LYRICA [Concomitant]
     Indication: HYPOAESTHESIA
  4. LYRICA [Concomitant]
     Indication: PAIN
  5. SYNTHROID [Suspect]
     Indication: HYPOTHYROIDISM
     Route: 048
     Dates: start: 20110101

REACTIONS (1)
  - HEADACHE [None]
